FAERS Safety Report 18513383 (Version 1)
Quarter: 2020Q4

REPORT INFORMATION
  Report Type: Report from Study
  Country: US (occurrence: US)
  Receive Date: 20201117
  Receipt Date: 20201117
  Transmission Date: 20210114
  Serious: Yes (Death, Other)
  Sender: FDA-Public Use
  Company Number: US-GILEAD-2020-0504733

PATIENT
  Age: 68 Year

DRUGS (6)
  1. CYTARABINE. [Concomitant]
     Active Substance: CYTARABINE
  2. RITUXIMAB. [Concomitant]
     Active Substance: RITUXIMAB
  3. DEXAMETHASONE. [Concomitant]
     Active Substance: DEXAMETHASONE
  4. AXICABTAGENE CILOLEUCEL [Suspect]
     Active Substance: AXICABTAGENE CILOLEUCEL
     Indication: NON-HODGKIN^S LYMPHOMA
     Route: 042
  5. AXICABTAGENE CILOLEUCEL [Suspect]
     Active Substance: AXICABTAGENE CILOLEUCEL
     Indication: METASTASES TO MENINGES
  6. THIOTEPA. [Concomitant]
     Active Substance: THIOTEPA

REACTIONS (1)
  - Non-Hodgkin^s lymphoma [Fatal]
